FAERS Safety Report 11091233 (Version 2)
Quarter: 2015Q2

REPORT INFORMATION
  Report Type: Spontaneous
  Country: US (occurrence: US)
  Receive Date: 20150505
  Receipt Date: 20150512
  Transmission Date: 20150821
  Serious: No
  Sender: FDA-Public Use
  Company Number: US-PFIZER INC-2015150974

PATIENT
  Age: 31 Year
  Sex: Male
  Weight: 79.37 kg

DRUGS (1)
  1. VIAGRA [Suspect]
     Active Substance: SILDENAFIL CITRATE
     Indication: ERECTILE DYSFUNCTION
     Dosage: 1 DF, AS NEEDED (THREE TIMES A DAY)
     Route: 048

REACTIONS (2)
  - Skin exfoliation [Unknown]
  - Penis disorder [Recovered/Resolved]

NARRATIVE: CASE EVENT DATE: 201502
